FAERS Safety Report 5214487-8 (Version None)
Quarter: 2007Q1

REPORT INFORMATION
  Report Type: 
  Country: None (occurrence: None)
  Receive Date: 20070119
  Receipt Date: 20070119
  Transmission Date: 20070707
  Serious: No
  Sender: FDA-Public Use
  Company Number: None

PATIENT

DRUGS (1)
  1. ARIPIPRAZOLE [Suspect]

REACTIONS (7)
  - AKATHISIA [None]
  - COORDINATION ABNORMAL [None]
  - DYSARTHRIA [None]
  - DYSTONIA [None]
  - EXTRAPYRAMIDAL DISORDER [None]
  - GAIT DISTURBANCE [None]
  - OEDEMA PERIPHERAL [None]
